FAERS Safety Report 7220532-0 (Version None)
Quarter: 2011Q1

REPORT INFORMATION
  Report Type: 
  Country: None (occurrence: None)
  Receive Date: 20110111
  Receipt Date: 20110108
  Transmission Date: 20110831
  Serious: Yes (Hospitalization, Other)
  Sender: FDA-Public Use
  Company Number: SA-ABBOTT-09P-259-0572993-00

PATIENT
  Age: 6 Year
  Sex: Male

DRUGS (1)
  1. KLACID SUSPENSION [Suspect]
     Indication: OTITIS MEDIA
     Route: 048
     Dates: start: 20090510, end: 20090512

REACTIONS (1)
  - INCORRECT DOSE ADMINISTERED [None]
